FAERS Safety Report 9465798 (Version 3)
Quarter: 2013Q3

REPORT INFORMATION
  Report Type: Spontaneous
  Country: US (occurrence: US)
  Receive Date: 20130820
  Receipt Date: 20130821
  Transmission Date: 20140515
  Serious: Yes (Other)
  Sender: FDA-Public Use
  Company Number: US-PFIZER INC-2013239792

PATIENT
  Sex: Female
  Weight: 70.3 kg

DRUGS (5)
  1. DILANTIN [Suspect]
     Indication: CONVULSION
     Dosage: 100 MG, 2X/DAY
     Route: 048
     Dates: start: 1988
  2. DILANTIN [Suspect]
     Indication: CONVULSION
  3. DILANTIN [Suspect]
     Indication: EPILEPSY
  4. DILANTIN [Suspect]
     Indication: CONVULSION
     Dosage: 50 MG, UNK
     Route: 048
     Dates: start: 1991
  5. DILANTIN [Suspect]
     Indication: CONVULSION

REACTIONS (4)
  - Insomnia [Not Recovered/Not Resolved]
  - Anticonvulsant drug level below therapeutic [Not Recovered/Not Resolved]
  - Drug ineffective [Not Recovered/Not Resolved]
  - Hypertrichosis [Not Recovered/Not Resolved]
